FAERS Safety Report 20748650 (Version 1)
Quarter: 2022Q2

REPORT INFORMATION
  Report Type: Spontaneous
  Country: US (occurrence: US)
  Receive Date: 20220426
  Receipt Date: 20220426
  Transmission Date: 20220721
  Serious: Yes (Hospitalization)
  Sender: FDA-Public Use
  Company Number: US-PTx-2022000002

PATIENT
  Sex: Male

DRUGS (2)
  1. LEUKINE [Suspect]
     Active Substance: SARGRAMOSTIM
     Indication: Stem cell transplant
     Dosage: FOR 30 DAYS. SARGRAMOSTIM (2 VIALS) DAILY, ONGOING
     Route: 058
     Dates: start: 20211209
  2. PROMCATA [Concomitant]
     Indication: Product used for unknown indication
     Dosage: ONGOING
     Route: 065
     Dates: start: 20210912

REACTIONS (1)
  - Respiratory disorder [Unknown]
